FAERS Safety Report 20835579 (Version 2)
Quarter: 2022Q2

REPORT INFORMATION
  Report Type: Spontaneous
  Country: US (occurrence: US)
  Receive Date: 20220516
  Receipt Date: 20220523
  Transmission Date: 20220721
  Serious: Yes (Other)
  Sender: FDA-Public Use
  Company Number: US-ALLERGAN-2215605US

PATIENT
  Sex: Female

DRUGS (1)
  1. REFRESH PLUS [Suspect]
     Active Substance: CARBOXYMETHYLCELLULOSE SODIUM
     Indication: Product used for unknown indication
     Dosage: UNK
     Route: 047

REACTIONS (5)
  - Eyelid operation [Recovering/Resolving]
  - Ulcerative keratitis [Recovering/Resolving]
  - Impaired healing [Unknown]
  - Fatigue [Unknown]
  - Product label issue [Unknown]
